FAERS Safety Report 13910279 (Version 1)
Quarter: 2017Q3

REPORT INFORMATION
  Report Type: Spontaneous
  Country: US (occurrence: None)
  Receive Date: 20170822
  Receipt Date: 20170822
  Transmission Date: 20171127
  Serious: No
  Sender: FDA-Public Use
  Company Number: None

PATIENT
  Age: 72 Year
  Sex: Female
  Weight: 53.52 kg

DRUGS (7)
  1. ADVAIR HFA [Concomitant]
     Active Substance: FLUTICASONE PROPIONATE\SALMETEROL XINAFOATE
  2. GENERIC FOR FLAGYL METRONIDAZLE 250MG [Suspect]
     Active Substance: METRONIDAZOLE
     Route: 048
  3. GENERIC FOR LEVAQUIN LEVOFLOXACIN 500MG [Suspect]
     Active Substance: LEVOFLOXACIN
     Indication: COLITIS
     Route: 048
     Dates: start: 20170706, end: 20170711
  4. SPIRIVA [Concomitant]
     Active Substance: TIOTROPIUM BROMIDE MONOHYDRATE
  5. GABAPENTEN [Concomitant]
     Active Substance: GABAPENTIN
  6. DAILY VITIMIN [Concomitant]
  7. XANAX [Concomitant]
     Active Substance: ALPRAZOLAM

REACTIONS (4)
  - Rash [None]
  - Pain in extremity [None]
  - Blister [None]
  - Arthralgia [None]

NARRATIVE: CASE EVENT DATE: 20170711
